FAERS Safety Report 23111160 (Version 1)
Quarter: 2023Q4

REPORT INFORMATION
  Report Type: Spontaneous
  Country: PL (occurrence: PL)
  Receive Date: 20231026
  Receipt Date: 20231026
  Transmission Date: 20240110
  Serious: No
  Sender: FDA-Public Use
  Company Number: PL-JAZZ-2021-PL-010842

PATIENT
  Age: 4 Month
  Sex: Male

DRUGS (1)
  1. DEFITELIO [Suspect]
     Active Substance: DEFIBROTIDE SODIUM
     Indication: Venoocclusive liver disease
     Dosage: DEFIBROTIDE WAS IMPLEMENTED FROM DAY +20 TO DAY +34

REACTIONS (1)
  - Off label use [Unknown]
